FAERS Safety Report 4600519-4 (Version None)
Quarter: 2005Q1

REPORT INFORMATION
  Report Type: 
  Country: None (occurrence: None)
  Receive Date: 20050304
  Receipt Date: 20050222
  Transmission Date: 20050727
  Serious: Yes (Other)
  Sender: FDA-Public Use
  Company Number: 2005036754

PATIENT
  Sex: Female
  Weight: 45.8133 kg

DRUGS (8)
  1. CELEBREX [Suspect]
     Indication: PAIN
     Dosage: (1 IN 1 D), ORAL
     Route: 048
     Dates: start: 20000101
  2. BEXTRA [Suspect]
     Indication: PAIN
     Dosage: 20 MG (20MG, 1 IN 2 D), ORAL
     Route: 048
  3. LOSARTAN POTASSIUM [Concomitant]
  4. FERROUS GLUCONATE (FERROUS GLUCONATE) [Concomitant]
  5. ALENDRONATE SODIUM [Concomitant]
  6. CALCIUM (CALCIUM) [Concomitant]
  7. LEVOTHYROXINE SODIUM [Concomitant]
  8. THERAGRAN (VITAMINS NOS) [Concomitant]

REACTIONS (8)
  - BACK DISORDER [None]
  - BLOOD PRESSURE INCREASED [None]
  - BONE DISORDER [None]
  - FALL [None]
  - FRACTURE [None]
  - HIP SURGERY [None]
  - PAIN [None]
  - TREATMENT NONCOMPLIANCE [None]
